FAERS Safety Report 12609685 (Version 1)
Quarter: 2016Q3

REPORT INFORMATION
  Report Type: Spontaneous
  Country: US (occurrence: None)
  Receive Date: 20160729
  Receipt Date: 20160729
  Transmission Date: 20161109
  Serious: No
  Sender: FDA-Public Use
  Company Number: None

PATIENT
  Age: 50 Year
  Sex: Female

DRUGS (8)
  1. CABERGOLINE. [Concomitant]
     Active Substance: CABERGOLINE
  2. MODAFINIL. [Concomitant]
     Active Substance: MODAFINIL
  3. RITUXAN [Concomitant]
     Active Substance: RITUXIMAB
  4. BUPROPION. [Concomitant]
     Active Substance: BUPROPION
  5. LIZANIDINE [Concomitant]
  6. AMPYRA [Suspect]
     Active Substance: DALFAMPRIDINE
     Indication: MULTIPLE SCLEROSIS
     Route: 048
     Dates: start: 201602
  7. LEVOTHYROXINE. [Concomitant]
     Active Substance: LEVOTHYROXINE
  8. TRAZODONE [Concomitant]
     Active Substance: TRAZODONE HYDROCHLORIDE

REACTIONS (4)
  - Laboratory test abnormal [None]
  - B-lymphocyte count decreased [None]
  - CD4 lymphocytes decreased [None]
  - T-lymphocyte count increased [None]

NARRATIVE: CASE EVENT DATE: 20160726
